FAERS Safety Report 21839336 (Version 4)
Quarter: 2023Q1

REPORT INFORMATION
  Report Type: Report from Study
  Country: PT (occurrence: PT)
  Receive Date: 20230109
  Receipt Date: 20230111
  Transmission Date: 20230418
  Serious: Yes (Other)
  Sender: FDA-Public Use
  Company Number: PT-ABBVIE-4252264

PATIENT
  Age: 66 Year
  Sex: Male

DRUGS (5)
  1. CARBIDOPA\LEVODOPA [Suspect]
     Active Substance: CARBIDOPA\LEVODOPA
     Indication: Parkinson^s disease
     Dosage: 20 MG + 5 MG?FREQUENCY: MORNIN:7ML;MAINT:3.2ML/H;EXTRA:1ML
     Route: 050
     Dates: start: 20220511
  2. CARBIDOPA\LEVODOPA [Suspect]
     Active Substance: CARBIDOPA\LEVODOPA
  3. BENSERAZIDE HYDROCHLORIDE\LEVODOPA [Concomitant]
     Active Substance: BENSERAZIDE HYDROCHLORIDE\LEVODOPA
     Indication: Product used for unknown indication
     Dosage: START DATE: BEFORE DUODOPA
  4. Folic acid plus vitamin b12 [Concomitant]
     Indication: Product used for unknown indication
     Dosage: START DATE: SINCE STARTED DUODOPA
  5. CLONAZEPAM [Concomitant]
     Active Substance: CLONAZEPAM
     Indication: Product used for unknown indication
     Dosage: START DATE: BEFORE DUODOPA?FORM STRENGTH: 0.5MG

REACTIONS (8)
  - Hepatic cyst [Not Recovered/Not Resolved]
  - Abdominal pain [Recovered/Resolved]
  - Stoma site pain [Recovered/Resolved]
  - Inflammatory marker increased [Not Recovered/Not Resolved]
  - Stoma site infection [Recovered/Resolved]
  - Stoma site erythema [Recovered/Resolved]
  - Device dislocation [Unknown]
  - Stoma site haemorrhage [Recovered/Resolved]

NARRATIVE: CASE EVENT DATE: 20221227
